FAERS Safety Report 19942420 (Version 1)
Quarter: 2021Q4

REPORT INFORMATION
  Report Type: Spontaneous
  Country: US (occurrence: US)
  Receive Date: 20211011
  Receipt Date: 20211011
  Transmission Date: 20220303
  Serious: Yes (Other)
  Sender: FDA-Public Use
  Company Number: None

PATIENT
  Age: 52 Year
  Sex: Female
  Weight: 71.55 kg

DRUGS (5)
  1. ENBREL [Suspect]
     Active Substance: ETANERCEPT
     Indication: Psoriatic arthropathy
     Dosage: ?          QUANTITY:1 INJECTION(S);OTHER FREQUENCY:1X WEEKLY;
     Route: 061
     Dates: start: 20210627, end: 20210926
  2. FOLIC ACID [Concomitant]
     Active Substance: FOLIC ACID
  3. IBUPROFEN [Concomitant]
     Active Substance: IBUPROFEN
  4. FAMOTIDINE [Concomitant]
     Active Substance: FAMOTIDINE
  5. BIOTIN [Concomitant]
     Active Substance: BIOTIN

REACTIONS (6)
  - Rash pruritic [None]
  - Rash macular [None]
  - Rash papular [None]
  - Scab [None]
  - Dry skin [None]
  - Skin exfoliation [None]

NARRATIVE: CASE EVENT DATE: 20210704
